FAERS Safety Report 5594569-1 (Version None)
Quarter: 2008Q1

REPORT INFORMATION
  Report Type: 
  Country: None (occurrence: None)
  Receive Date: 20080115
  Receipt Date: 20080102
  Transmission Date: 20080703
  Serious: Yes (Death)
  Sender: FDA-Public Use
  Company Number: 2008MP000001

PATIENT

DRUGS (1)
  1. GLIADEL [Suspect]
     Dosage: ; 1X; ICER

REACTIONS (1)
  - DEATH [None]
